FAERS Safety Report 21979949 (Version 1)
Quarter: 2023Q1

REPORT INFORMATION
  Report Type: Spontaneous
  Country: DE (occurrence: DE)
  Receive Date: 20230210
  Receipt Date: 20230210
  Transmission Date: 20230417
  Serious: Yes (Hospitalization)
  Sender: FDA-Public Use
  Company Number: DE-ADRED-08245-01

PATIENT
  Age: 71 Year
  Sex: Female
  Weight: 59 kg

DRUGS (9)
  1. ASPIRIN [Suspect]
     Active Substance: ASPIRIN
     Indication: Product used for unknown indication
     Dosage: 100 MG, QD ( 0-1-0-0)
     Route: 065
  2. EDOXABAN [Suspect]
     Active Substance: EDOXABAN
     Indication: Product used for unknown indication
     Dosage: 30 MG, QD (0-1-0-0)
     Route: 065
  3. TRIMIPRAMINE [Concomitant]
     Active Substance: TRIMIPRAMINE
     Indication: Product used for unknown indication
     Dosage: 100 MG, QD (0-0-0.5-0)
     Route: 065
  4. BISOPROLOL [Concomitant]
     Active Substance: BISOPROLOL
     Indication: Product used for unknown indication
     Dosage: 5 MG, QD (1-0-0-0)
     Route: 065
  5. CHOLECALCIFEROL [Concomitant]
     Active Substance: CHOLECALCIFEROL
     Indication: Product used for unknown indication
     Dosage: 1000 IE, QD (1-0-0-0)
     Route: 065
  6. ESTRADIOL [Concomitant]
     Active Substance: ESTRADIOL
     Indication: Product used for unknown indication
     Dosage: 10|2 MG, QD (1-0-0-0)
     Route: 065
  7. ALLOPURINOL [Concomitant]
     Active Substance: ALLOPURINOL
     Indication: Product used for unknown indication
     Dosage: 100 M, QD (1-0-0-0)
     Route: 065
  8. TORSEMIDE [Concomitant]
     Active Substance: TORSEMIDE
     Indication: Product used for unknown indication
     Dosage: 10 MG, QD (1-0-0-0)
     Route: 065
  9. PANTOPRAZOLE SODIUM [Concomitant]
     Active Substance: PANTOPRAZOLE SODIUM
     Indication: Product used for unknown indication
     Dosage: 40 MG, QD (1-0-0-0)
     Route: 065

REACTIONS (8)
  - Condition aggravated [Unknown]
  - Hypochromic anaemia [Unknown]
  - Muscular weakness [Unknown]
  - Systemic infection [Unknown]
  - Oedema peripheral [Unknown]
  - General physical health deterioration [Unknown]
  - Renal impairment [Unknown]
  - Dehydration [Unknown]
